FAERS Safety Report 9613563 (Version 1)
Quarter: 2013Q4

REPORT INFORMATION
  Report Type: Spontaneous
  Country: US (occurrence: US)
  Receive Date: 20131010
  Receipt Date: 20131010
  Transmission Date: 20140711
  Serious: No
  Sender: FDA-Public Use
  Company Number: US-TEVA-437615USA

PATIENT
  Age: 22 Year
  Sex: Female
  Weight: 56.75 kg

DRUGS (5)
  1. PLAN B ONE-STEP [Suspect]
     Dosage: 1.5 MILLIGRAM DAILY;
     Route: 048
     Dates: start: 20130918, end: 20130918
  2. PLAN B ONE-STEP [Suspect]
     Dosage: 1.5 MILLIGRAM DAILY;
     Route: 048
     Dates: start: 20130925, end: 20130925
  3. WELLBUTRIN [Concomitant]
     Indication: DEPRESSION
     Dates: start: 2011
  4. LEVOTHYROXINE [Concomitant]
     Indication: THYROID DISORDER
     Dates: start: 2011
  5. VYVANCE [Concomitant]
     Indication: ATTENTION DEFICIT/HYPERACTIVITY DISORDER
     Dates: start: 2013

REACTIONS (2)
  - Menstruation irregular [Not Recovered/Not Resolved]
  - Pelvic pain [Not Recovered/Not Resolved]
